FAERS Safety Report 4341891-2 (Version None)
Quarter: 2004Q2

REPORT INFORMATION
  Report Type: 
  Country: None (occurrence: None)
  Receive Date: 20040415
  Receipt Date: 20040405
  Transmission Date: 20050107
  Serious: Yes (Hospitalization)
  Sender: FDA-Public Use
  Company Number: 23592

PATIENT
  Age: 63 Year
  Sex: Female

DRUGS (4)
  1. FLECAINIDE ACETATE [Suspect]
     Indication: ATRIAL FLUTTER
     Dosage: 400 MG (200 MG, 2 IN 1 DAY (S) ) ORAL
     Route: 048
     Dates: start: 20040312, end: 20040315
  2. BISOPROLOL [Concomitant]
  3. WARFARIN SODIUM [Concomitant]
  4. DIGOXIN [Concomitant]

REACTIONS (1)
  - PULMONARY OEDEMA [None]
